FAERS Safety Report 9413532 (Version 1)
Quarter: 2013Q2

REPORT INFORMATION
  Report Type: Spontaneous
  Country: US (occurrence: None)
  Receive Date: 20130430
  Receipt Date: 20130430
  Transmission Date: 20140414
  Serious: Yes (Other)
  Sender: FDA-Public Use
  Company Number: 94151

PATIENT
  Age: 73 Year
  Sex: Female
  Weight: 90.72 kg

DRUGS (11)
  1. ROHTO HYDRA [Suspect]
     Route: 047
     Dates: start: 20130408
  2. CLONAZEPAM [Concomitant]
  3. SERTRALINE [Concomitant]
  4. HYDROCHLOROT [Concomitant]
  5. AMLODIPINE [Concomitant]
  6. LEVOTHYROXINE [Concomitant]
  7. OMEPRAZOL [Concomitant]
  8. FAMOTIDIN [Concomitant]
  9. SINGULAIR [Concomitant]
  10. ADVAIR [Concomitant]
  11. ALBUTEROL [Concomitant]

REACTIONS (1)
  - Feeling abnormal [None]
